FAERS Safety Report 6501345-1 (Version None)
Quarter: 2009Q4

REPORT INFORMATION
  Report Type: 
  Country: None (occurrence: None)
  Receive Date: 20091215
  Receipt Date: 20091215
  Transmission Date: 20100525
  Serious: Yes (Other)
  Sender: FDA-Public Use
  Company Number: None

PATIENT
  Sex: Female
  Weight: 52.1 kg

DRUGS (1)
  1. KEPPRA [Suspect]
     Indication: POST-TRAUMATIC EPILEPSY
     Dosage: 500 MG TWICE A DAY PO
     Route: 048
     Dates: start: 20070303, end: 20091215

REACTIONS (1)
  - ANAPHYLACTIC REACTION [None]
